FAERS Safety Report 8595568-8 (Version None)
Quarter: 2012Q3

REPORT INFORMATION
  Report Type: 
  Country: None (occurrence: None)
  Receive Date: 20120815
  Receipt Date: 20120807
  Transmission Date: 20120928
  Serious: Yes (Other)
  Sender: FDA-Public Use
  Company Number: US-US-EMD SERONO, INC.-7050249

PATIENT
  Sex: Female

DRUGS (3)
  1. NEURONTIN [Concomitant]
     Indication: PRODUCT USED FOR UNKNOWN INDICATION
  2. REBIF [Suspect]
     Indication: PRODUCT USED FOR UNKNOWN INDICATION
     Route: 058
     Dates: start: 20080324
  3. ANTIBIOTICS [Suspect]
     Indication: URINARY TRACT INFECTION
     Dates: start: 20110101, end: 20110101

REACTIONS (5)
  - FUNGAL OESOPHAGITIS [None]
  - VULVOVAGINAL MYCOTIC INFECTION [None]
  - URINARY TRACT INFECTION [None]
  - OEDEMA PERIPHERAL [None]
  - HYPOAESTHESIA [None]
